FAERS Safety Report 10767731 (Version 2)
Quarter: 2015Q2

REPORT INFORMATION
  Report Type: Report from Study
  Country: JP (occurrence: JP)
  Receive Date: 20150205
  Receipt Date: 20150618
  Transmission Date: 20150821
  Serious: Yes (Other)
  Sender: FDA-Public Use
  Company Number: JP-B.I. PHARMACEUTICALS,INC./RIDGEFIELD-2014-BI-34260NB

PATIENT
  Age: 56 Year
  Sex: Female
  Weight: 50.6 kg

DRUGS (8)
  1. ALLEGRA [Concomitant]
     Active Substance: FEXOFENADINE HYDROCHLORIDE
     Indication: PRODUCT USED FOR UNKNOWN INDICATION
     Dosage: 120 MG
     Route: 048
  2. MINOMYCIN [Concomitant]
     Active Substance: MINOCYCLINE HYDROCHLORIDE
     Indication: RASH MACULO-PAPULAR
     Dosage: 100 MG
     Route: 048
     Dates: start: 20140715, end: 20140820
  3. MICARDIS [Concomitant]
     Active Substance: TELMISARTAN
     Indication: PRODUCT USED FOR UNKNOWN INDICATION
     Dosage: 40 MG
     Route: 048
  4. GILOTRIF [Suspect]
     Active Substance: AFATINIB
     Indication: LUNG ADENOCARCINOMA
     Dosage: 40 MG
     Route: 048
     Dates: start: 20140715, end: 20140821
  5. AMLODIPINE [Concomitant]
     Active Substance: AMLODIPINE BESYLATE
     Indication: PRODUCT USED FOR UNKNOWN INDICATION
     Dosage: 5 MG
     Route: 048
  6. BAYASPIRIN [Concomitant]
     Active Substance: ASPIRIN
     Indication: PRODUCT USED FOR UNKNOWN INDICATION
     Dosage: 100 MG
     Route: 048
  7. TAKEPRON [Concomitant]
     Active Substance: LANSOPRAZOLE
     Indication: PRODUCT USED FOR UNKNOWN INDICATION
     Dosage: 15 MG
     Route: 048
  8. BESOFTEN [Concomitant]
     Active Substance: SODIUM ALGINATE
     Indication: RASH MACULO-PAPULAR
     Route: 065
     Dates: start: 20140715

REACTIONS (4)
  - Diarrhoea [Recovered/Resolved]
  - Malignant neoplasm progression [Not Recovered/Not Resolved]
  - Rash maculo-papular [Not Recovered/Not Resolved]
  - Stomatitis [Recovered/Resolved]

NARRATIVE: CASE EVENT DATE: 20140719
